FAERS Safety Report 10714864 (Version 1)
Quarter: 2015Q1

REPORT INFORMATION
  Report Type: Spontaneous
  Country: FR (occurrence: FR)
  Receive Date: 20150115
  Receipt Date: 20150115
  Transmission Date: 20150721
  Serious: Yes (Death, Life-Threatening, Other)
  Sender: FDA-Public Use
  Company Number: FR-BRISTOL-MYERS SQUIBB COMPANY-BMS-2015-000403

PATIENT
  Age: 72 Year
  Sex: Male

DRUGS (11)
  1. BISOPROLOL [Concomitant]
     Active Substance: BISOPROLOL
  2. LIPUR [Concomitant]
     Active Substance: GEMFIBROZIL
  3. ALDACTONE [Concomitant]
     Active Substance: SPIRONOLACTONE
  4. AMLOR [Concomitant]
     Active Substance: AMLODIPINE BESYLATE
  5. LYSINE ACETYLSALICYLIC [Suspect]
     Active Substance: ASPIRIN LYSINE
     Indication: ISCHAEMIC CARDIOMYOPATHY
     Dosage: 100 MG, QD
     Route: 048
  6. CO-APROVEL [Concomitant]
     Active Substance: HYDROCHLOROTHIAZIDE\IRBESARTAN
  7. JANUMET [Concomitant]
     Active Substance: METFORMIN HYDROCHLORIDE\SITAGLIPTIN PHOSPHATE
  8. ELIQUIS [Suspect]
     Active Substance: APIXABAN
     Indication: CEREBROVASCULAR ACCIDENT PROPHYLAXIS
     Dosage: 5 MG, BID
     Route: 048
  9. CORDARONE [Concomitant]
     Active Substance: AMIODARONE HYDROCHLORIDE
  10. EZETROL [Concomitant]
     Active Substance: EZETIMIBE
  11. AMAREL [Concomitant]
     Active Substance: GLIMEPIRIDE

REACTIONS (5)
  - Subdural haematoma [Fatal]
  - Skull fractured base [None]
  - Epistaxis [Unknown]
  - Brain contusion [None]
  - Fall [Unknown]

NARRATIVE: CASE EVENT DATE: 20141120
